FAERS Safety Report 14474637 (Version 8)
Quarter: 2020Q1

REPORT INFORMATION
  Report Type: Report from Study
  Country: BE (occurrence: BE)
  Receive Date: 20180201
  Receipt Date: 20200224
  Transmission Date: 20200409
  Serious: Yes (Hospitalization, Other)
  Sender: FDA-Public Use
  Company Number: BE-MYLANLABS-2018M1005885

PATIENT
  Age: 81 Year
  Sex: Female
  Weight: 66 kg

DRUGS (19)
  1. BEVACIZUMAB. [Suspect]
     Active Substance: BEVACIZUMAB
     Dosage: 780 MILLIGRAM, Q3W
     Route: 042
     Dates: start: 20170713
  2. BEVACIZUMAB. [Suspect]
     Active Substance: BEVACIZUMAB
     Dosage: 795 MILLIGRAM, Q3W
     Route: 042
     Dates: start: 20170824
  3. CAELYX [Suspect]
     Active Substance: DOXORUBICIN HYDROCHLORIDE
     Dosage: UNK
  4. YONDELIS [Concomitant]
     Active Substance: TRABECTEDIN
     Dosage: UNK
  5. BEVACIZUMAB. [Suspect]
     Active Substance: BEVACIZUMAB
     Dosage: 780 MILLIGRAM, Q3W
     Route: 042
     Dates: start: 20180503
  6. CAELYX [Suspect]
     Active Substance: DOXORUBICIN HYDROCHLORIDE
     Indication: PRODUCT USED FOR UNKNOWN INDICATION
     Dosage: 30 MILLIGRAM, Q3W
     Route: 042
     Dates: start: 20180627
  7. AMLOR [Concomitant]
     Active Substance: AMLODIPINE BESYLATE
     Dosage: UNK
  8. TRITACE [Concomitant]
     Active Substance: RAMIPRIL
     Dosage: UNK
  9. TRADONAL [Concomitant]
     Active Substance: TRAMADOL HYDROCHLORIDE
     Indication: PROPHYLAXIS
     Dosage: UNK
     Route: 065
     Dates: end: 20170606
  10. PACLITAXEL. [Suspect]
     Active Substance: PACLITAXEL
     Indication: OVARIAN CANCER
     Dosage: 80 MG/M2, Q3W
     Route: 042
     Dates: start: 20170601, end: 20171102
  11. SIMVASTATIN. [Suspect]
     Active Substance: SIMVASTATIN
     Indication: PRODUCT USED FOR UNKNOWN INDICATION
     Dosage: UNK
  12. CARBOPLATIN. [Suspect]
     Active Substance: CARBOPLATIN
     Dosage: 80 MILLIGRAM/SQ. METER, Q3W, 2 AUC
     Route: 042
     Dates: start: 20170601, end: 20171102
  13. PANTOMED                           /01263204/ [Concomitant]
     Active Substance: PANTOPRAZOLE SODIUM
     Indication: PROPHYLAXIS
     Dosage: UNK
  14. PARACETAMOL [Concomitant]
     Active Substance: ACETAMINOPHEN
     Indication: PROPHYLAXIS
     Dosage: UNK
     Route: 065
     Dates: start: 20170529
  15. PROGYNOVA                          /00045401/ [Concomitant]
     Active Substance: ESTRADIOL VALERATE
     Dosage: UNK
     Route: 065
     Dates: end: 20170602
  16. BEVACIZUMAB. [Suspect]
     Active Substance: BEVACIZUMAB
     Indication: OVARIAN CANCER
     Dosage: UNK
  17. SIMVASTATIN. [Concomitant]
     Active Substance: SIMVASTATIN
     Dosage: UNK
  18. CARBOPLATIN. [Suspect]
     Active Substance: CARBOPLATIN
     Indication: OVARIAN CANCER
     Dosage: 1 DF, Q3W 2 AUC
     Route: 042
     Dates: start: 20170601, end: 20171102
  19. BEVACIZUMAB. [Suspect]
     Active Substance: BEVACIZUMAB
     Dosage: 990 MILLIGRAM, Q3W
     Route: 042
     Dates: start: 20170601

REACTIONS (8)
  - Venous thrombosis limb [Not Recovered/Not Resolved]
  - Febrile neutropenia [Not Recovered/Not Resolved]
  - Epistaxis [Recovered/Resolved]
  - Hypertension [Not Recovered/Not Resolved]
  - Neutrophil count decreased [Recovered/Resolved]
  - Oedema peripheral [Recovered/Resolved]
  - Vasculitis [Not Recovered/Not Resolved]
  - Platelet count decreased [Recovered/Resolved]

NARRATIVE: CASE EVENT DATE: 20170629
